FAERS Safety Report 7251105-1 (Version None)
Quarter: 2011Q1

REPORT INFORMATION
  Report Type: 
  Country: None (occurrence: None)
  Receive Date: 20110128
  Receipt Date: 20110119
  Transmission Date: 20110831
  Serious: Yes (Other)
  Sender: FDA-Public Use
  Company Number: US-ASTRAZENECA-2010SE25777

PATIENT
  Age: 70 Year
  Sex: Male

DRUGS (5)
  1. NEXIUM [Suspect]
     Route: 048
  2. SINEMET [Concomitant]
  3. TOPROL-XL [Suspect]
     Route: 048
  4. LIPITOR [Concomitant]
  5. COUMADIN [Concomitant]

REACTIONS (2)
  - CEREBROVASCULAR ACCIDENT [None]
  - PARKINSON'S DISEASE [None]
